FAERS Safety Report 21885975 (Version 2)
Quarter: 2023Q1

REPORT INFORMATION
  Report Type: Spontaneous
  Country: US (occurrence: None)
  Receive Date: 20230119
  Receipt Date: 20230223
  Transmission Date: 20230417
  Serious: Yes (Other)
  Sender: FDA-Public Use
  Company Number: 2023A008218

PATIENT
  Sex: Male
  Weight: 79.4 kg

DRUGS (1)
  1. BEVESPI AEROSPHERE [Suspect]
     Active Substance: FORMOTEROL FUMARATE\GLYCOPYRROLATE
     Indication: Emphysema
     Dosage: BEVESPI, 2 INHALATIONS 2 TIMES A DAY
     Route: 055

REACTIONS (10)
  - Cataract [Unknown]
  - Dementia [Unknown]
  - Dyspnoea [Unknown]
  - Emphysema [Unknown]
  - Incorrect dose administered by device [Unknown]
  - Off label use [Unknown]
  - Device use issue [Unknown]
  - Device delivery system issue [Unknown]
  - Wrong technique in device usage process [Unknown]
  - Device physical property issue [Unknown]
